FAERS Safety Report 9259349 (Version 1)
Quarter: 2013Q2

REPORT INFORMATION
  Report Type: Report from Study
  Country: DE (occurrence: DE)
  Receive Date: 20130427
  Receipt Date: 20130427
  Transmission Date: 20140414
  Serious: Yes (Other)
  Sender: FDA-Public Use
  Company Number: DE-ROCHE-1218843

PATIENT
  Sex: 0

DRUGS (6)
  1. TRETINOIN [Suspect]
     Indication: ACUTE PROMYELOCYTIC LEUKAEMIA
     Dosage: OVER 5 DAYS
     Route: 065
  2. CYTARABINE [Suspect]
     Indication: ACUTE PROMYELOCYTIC LEUKAEMIA
     Dosage: CONTINOUS I.V. DAY 1 AND 2
     Route: 042
  3. CYTARABINE [Suspect]
     Dosage: DAY 3 TO 8
     Route: 042
  4. 6-THIOGUANINE [Suspect]
     Indication: ACUTE PROMYELOCYTIC LEUKAEMIA
     Dosage: DAY 3 TO 9
     Route: 048
  5. DAUNORUBICIN [Suspect]
     Indication: ACUTE PROMYELOCYTIC LEUKAEMIA
     Route: 042
  6. MITOXANTRONE [Suspect]
     Indication: ACUTE PROMYELOCYTIC LEUKAEMIA
     Dosage: DAYS 3 TO 5
     Route: 042

REACTIONS (7)
  - Cardiac failure [Unknown]
  - Pyrexia [Unknown]
  - Infection [Unknown]
  - Hepatotoxicity [Unknown]
  - Haemorrhage [Unknown]
  - Diarrhoea [Unknown]
  - Acute promyelocytic leukaemia differentiation syndrome [Unknown]
